FAERS Safety Report 16072438 (Version 1)
Quarter: 2019Q1

REPORT INFORMATION
  Report Type: Spontaneous
  Country: US (occurrence: US)
  Receive Date: 20190314
  Receipt Date: 20190314
  Transmission Date: 20190418
  Serious: No
  Sender: FDA-Public Use
  Company Number: US-ALLERGAN-1841557US

PATIENT
  Age: 61 Year
  Sex: Female

DRUGS (1)
  1. ASACOL HD [Suspect]
     Active Substance: MESALAMINE
     Indication: PRODUCT USED FOR UNKNOWN INDICATION
     Dosage: 2 DF, Q8HR
     Route: 048
     Dates: start: 201808, end: 201808

REACTIONS (3)
  - Haemorrhage [Recovered/Resolved]
  - Burning sensation [Recovered/Resolved]
  - Gastrointestinal tract irritation [Recovered/Resolved]

NARRATIVE: CASE EVENT DATE: 201808
